FAERS Safety Report 4852788-3 (Version None)
Quarter: 2005Q4

REPORT INFORMATION
  Report Type: 
  Country: None (occurrence: None)
  Receive Date: 20051214
  Receipt Date: 20040315
  Transmission Date: 20060501
  Serious: Yes (Hospitalization, Other)
  Sender: FDA-Public Use
  Company Number: PHBS2004BE04601

PATIENT
  Sex: Female

DRUGS (4)
  1. RITALIN [Suspect]
     Dosage: 150 MG/DAY
     Route: 048
  2. RITALIN [Suspect]
     Dosage: 60 MG/DAY
     Route: 048
  3. RITALIN [Suspect]
     Dosage: 1200 MG/D
     Route: 048
  4. PROZAC [Concomitant]
     Route: 065

REACTIONS (2)
  - DRUG DEPENDENCE [None]
  - PALPITATIONS [None]
